FAERS Safety Report 8193437-9 (Version None)
Quarter: 2012Q1

REPORT INFORMATION
  Report Type: 
  Country: None (occurrence: None)
  Receive Date: 20120308
  Receipt Date: 20120229
  Transmission Date: 20120608
  Serious: Yes (Life-Threatening, Other)
  Sender: FDA-Public Use
  Company Number: RU-TEVA-325836USA

PATIENT
  Sex: Female

DRUGS (1)
  1. BENDAMUSTINE [Suspect]
     Route: 042

REACTIONS (1)
  - ACUTE MYOCARDIAL INFARCTION [None]
